FAERS Safety Report 7974678-X (Version None)
Quarter: 2011Q4

REPORT INFORMATION
  Report Type: 
  Country: None (occurrence: None)
  Receive Date: 20111213
  Receipt Date: 20111201
  Transmission Date: 20120403
  Serious: Yes (Other)
  Sender: FDA-Public Use
  Company Number: PHHY2011SG103186

PATIENT
  Sex: Male

DRUGS (2)
  1. AVASTIN [Concomitant]
     Indication: EYE DISORDER
     Dosage: UNK UKN, UNK
     Route: 065
  2. GLEEVEC [Suspect]
     Indication: CHRONIC MYELOID LEUKAEMIA
     Dosage: 400 MG, DAILY
     Route: 065
     Dates: start: 20110701

REACTIONS (4)
  - RETINAL DETACHMENT [None]
  - RETINAL VEIN OCCLUSION [None]
  - GLAUCOMA [None]
  - LEUKOCYTOSIS [None]
